FAERS Safety Report 6212679-2 (Version None)
Quarter: 2009Q2

REPORT INFORMATION
  Report Type: 
  Country: None (occurrence: None)
  Receive Date: 20090603
  Receipt Date: 20090526
  Transmission Date: 20091009
  Serious: Yes (Other)
  Sender: FDA-Public Use
  Company Number: US-ROCHE-612918

PATIENT
  Sex: Female
  Weight: 60.3 kg

DRUGS (3)
  1. CAPECITABINE [Suspect]
     Indication: COLORECTAL CANCER
     Route: 048
     Dates: start: 20080920
  2. CAPECITABINE [Suspect]
     Dosage: FREQUENCY: M-F
     Route: 048
     Dates: start: 20090121, end: 20090128
  3. CAPECITABINE [Suspect]
     Route: 048
     Dates: end: 20090301

REACTIONS (2)
  - DIARRHOEA [None]
  - MYELODYSPLASTIC SYNDROME [None]
